FAERS Safety Report 17455113 (Version 1)
Quarter: 2020Q1

REPORT INFORMATION
  Report Type: Spontaneous
  Country: US (occurrence: US)
  Receive Date: 20200212
  Receipt Date: 20200212
  Transmission Date: 20200409
  Serious: Yes (Hospitalization, Other)
  Sender: FDA-Public Use
  Company Number: None

PATIENT
  Age: 25 Year
  Sex: Female

DRUGS (1)
  1. ORGANIC SMART CARTS (CBD\THC) [Suspect]
     Active Substance: CANNABIDIOL\.DELTA.8-TETRAHYDROCANNABINOL\DEVICE\HERBALS

REACTIONS (9)
  - Nausea [None]
  - Nasopharyngitis [None]
  - Dyspnoea [None]
  - Abdominal pain [None]
  - Cough [None]
  - Vomiting [None]
  - Sputum discoloured [None]
  - Diarrhoea [None]
  - Secretion discharge [None]

NARRATIVE: CASE EVENT DATE: 20191001
